FAERS Safety Report 8308251-0 (Version None)
Quarter: 2012Q2

REPORT INFORMATION
  Report Type: 
  Country: None (occurrence: None)
  Receive Date: 20120424
  Receipt Date: 20120416
  Transmission Date: 20120825
  Serious: Yes (Hospitalization)
  Sender: FDA-Public Use
  Company Number: US-JNJFOC-20120400487

PATIENT
  Sex: Female
  Weight: 88 kg

DRUGS (11)
  1. MULTI-VITAMINS [Concomitant]
  2. XARELTO [Suspect]
     Indication: KNEE OPERATION
     Route: 048
     Dates: start: 20120314, end: 20120317
  3. TYLENOL (CAPLET) [Concomitant]
  4. LASIX [Concomitant]
  5. XARELTO [Suspect]
     Indication: PROPHYLAXIS
     Route: 048
     Dates: start: 20120314, end: 20120317
  6. HYDROCODONE BITARTRATE [Concomitant]
  7. ZOLOFT [Concomitant]
  8. AMBIEN [Concomitant]
     Indication: SLEEP DISORDER
  9. XANAX [Concomitant]
  10. SIMVASTATIN [Concomitant]
  11. CALCIUM [Concomitant]

REACTIONS (2)
  - ISCHAEMIC STROKE [None]
  - MYOCARDIAL INFARCTION [None]
